FAERS Safety Report 7600948-0 (Version None)
Quarter: 2011Q3

REPORT INFORMATION
  Report Type: 
  Country: None (occurrence: None)
  Receive Date: 20110701
  Receipt Date: 20110127
  Transmission Date: 20111222
  Serious: Yes (Other)
  Sender: FDA-Public Use
  Company Number: GXBR2010US01739

PATIENT
  Age: 11 Year
  Sex: Female
  Weight: 37.2 kg

DRUGS (5)
  1. LEVOTHYROXINE SODIUM [Concomitant]
  2. TOPAMAX [Concomitant]
  3. OMNITROPE [Suspect]
     Indication: GROWTH HORMONE DEFICIENCY
     Dosage: 1.7 MG, QD, SUBCUTANEOUS
     Route: 058
     Dates: start: 20100921, end: 20101018
  4. HYDROCORTONE [Concomitant]
  5. DDAVP /UNK/ (DESMOPRESSIN) [Concomitant]

REACTIONS (2)
  - INTRACRANIAL PRESSURE INCREASED [None]
  - HEADACHE [None]
